FAERS Safety Report 4352975-7 (Version None)
Quarter: 2004Q2

REPORT INFORMATION
  Report Type: 
  Country: None (occurrence: None)
  Receive Date: 20040429
  Receipt Date: 20040420
  Transmission Date: 20050107
  Serious: Yes (Hospitalization)
  Sender: FDA-Public Use
  Company Number: 2004026899

PATIENT
  Age: 54 Year
  Sex: Female
  Weight: 74 kg

DRUGS (12)
  1. FLUCONAZOLE [Suspect]
     Indication: PROPHYLACTIC CHEMOTHERAPY
     Dosage: 200 MG (DAILY), ORAL
     Route: 048
     Dates: start: 20040308, end: 20040327
  2. TEICOPLAIN (TEICOPLANIN) [Suspect]
     Indication: PROPHYLACTIC CHEMOTHERAPY
     Dosage: 400 MG (DAILY), ITNRAVENOUS
     Route: 042
     Dates: start: 20040314, end: 20040314
  3. CEFTAZIDIME PENTAHYDRATE (CEFTAZIDIME PENTAHYDRATE) [Suspect]
     Indication: PROPHYLACTIC CHEMOTHERAPY
     Dosage: 3 MG (TID), INTRAVENOUS
     Route: 042
     Dates: end: 20040325
  4. CIPROFLOXACIN [Suspect]
     Indication: PROPHYLACTIC CHEMOTHERAPY
     Dosage: 400 MG (BID), INTRAVENOUS
     Route: 042
     Dates: end: 20040325
  5. ACYCLOVIR [Suspect]
     Indication: PROPHYLACTIC CHEMOTHERAPY
     Dosage: TID, INTRAVENOUS
     Route: 042
     Dates: start: 20040308, end: 20040325
  6. VANCOMYCIN HCL [Suspect]
     Indication: PROPHYLACTIC CHEMOTHERAPY
     Dosage: 1000 MG (BID), INTRAMUSCULAR
     Route: 030
     Dates: start: 20040308, end: 20040314
  7. CARMUSTINE [Concomitant]
  8. ETOPOSIDE [Concomitant]
  9. CYTARABINE [Concomitant]
  10. MELPHALAN (MELPHALAN) [Concomitant]
  11. ANTIBIOTICS (ANTIBIOTICS) [Concomitant]
  12. ANTIVIRALS FOR SYSTEMIC USE (ANTIVIRAL FOR SYSTEMIC USE) [Concomitant]

REACTIONS (5)
  - HEADACHE [None]
  - RASH GENERALISED [None]
  - RASH MACULAR [None]
  - RASH PAPULAR [None]
  - RASH PRURITIC [None]
